FAERS Safety Report 15417964 (Version 3)
Quarter: 2019Q1

REPORT INFORMATION
  Report Type: Spontaneous
  Country: US (occurrence: US)
  Receive Date: 20180924
  Receipt Date: 20190128
  Transmission Date: 20190417
  Serious: No
  Sender: FDA-Public Use
  Company Number: US-SA-2013SA120346

PATIENT
  Age: 68 Year
  Sex: Female

DRUGS (5)
  1. METFORMIN HYDROCHLORIDE. [Suspect]
     Active Substance: METFORMIN HYDROCHLORIDE
     Indication: BLOOD GLUCOSE ABNORMAL
     Dosage: UNK UNK,BID
     Route: 065
  2. LANTUS [Suspect]
     Active Substance: INSULIN GLARGINE
     Dosage: 47 U, QD
  3. LANTUS [Suspect]
     Active Substance: INSULIN GLARGINE
     Indication: TYPE 2 DIABETES MELLITUS
     Dosage: 43 U,QD
     Route: 058
     Dates: start: 201309
  4. LANTUS [Suspect]
     Active Substance: INSULIN GLARGINE
     Dosage: 47 U, QD
  5. LANTUS [Suspect]
     Active Substance: INSULIN GLARGINE
     Dosage: 48 IU, DAILY IN EVENING
     Route: 065

REACTIONS (5)
  - Arthropathy [Unknown]
  - Memory impairment [Unknown]
  - Condition aggravated [Unknown]
  - Glycosylated haemoglobin increased [Unknown]
  - Device operational issue [Unknown]
